FAERS Safety Report 8951038 (Version 1)
Quarter: 2012Q4

REPORT INFORMATION
  Report Type: 
  Country: US (occurrence: US)
  Receive Date: 20121207
  Receipt Date: 20121207
  Transmission Date: 20130627
  Serious: Yes (Life-Threatening, Other)
  Sender: FDA-Public Use
  Company Number: US-ROXANE LABORATORIES, INC.-2012-RO-02501RO

PATIENT
  Age: 31 Year
  Sex: Male

DRUGS (2)
  1. ALPRAZOLAM INTENSOL [ORAL SOLUTION (CONCENTRATE)] 1 MG/ML [Suspect]
  2. HEROIN [Suspect]

REACTIONS (8)
  - Toxicity to various agents [Unknown]
  - Deafness [Unknown]
  - Mental status changes [Unknown]
  - Tachycardia [Unknown]
  - Hypotension [Unknown]
  - Renal impairment [Unknown]
  - Troponin increased [Unknown]
  - Transaminases increased [Unknown]
